FAERS Safety Report 23816702 (Version 1)
Quarter: 2024Q2

REPORT INFORMATION
  Report Type: Spontaneous
  Country: FR (occurrence: FR)
  Receive Date: 20240504
  Receipt Date: 20240504
  Transmission Date: 20240715
  Serious: Yes (Hospitalization)
  Sender: FDA-Public Use
  Company Number: None

PATIENT
  Age: 11 Year
  Sex: Male
  Weight: 46 kg

DRUGS (7)
  1. CIPROFLOXACIN [Suspect]
     Active Substance: CIPROFLOXACIN
     Indication: Antibiotic prophylaxis
     Dosage: 500 MG EVERY 12 HOURS.
     Route: 048
     Dates: start: 20240118, end: 20240122
  2. CIPROFLOXACIN [Suspect]
     Active Substance: CIPROFLOXACIN
     Indication: Antibiotic prophylaxis
     Dosage: 400 MG EVERY 12 HOURS.
     Route: 042
     Dates: start: 20240122, end: 20240131
  3. METRONIDAZOLE [Suspect]
     Active Substance: METRONIDAZOLE
     Indication: Antibiotic prophylaxis
     Dosage: 10 MG/KG (445 MG) EVERY 8 HOURS
     Route: 042
     Dates: start: 20240122, end: 20240131
  4. METRONIDAZOLE [Suspect]
     Active Substance: METRONIDAZOLE
     Indication: Antibiotic prophylaxis
     Dosage: 500 MG EVERY 12 HOURS
     Route: 048
     Dates: start: 20240118, end: 20240121
  5. ACETAMINOPHEN [Concomitant]
     Active Substance: ACETAMINOPHEN
     Indication: Anxiety
     Dosage: 500 MG EVERY 6 HOURS.
     Route: 042
     Dates: start: 20240122
  6. ENOXAPARIN SODIUM [Concomitant]
     Active Substance: ENOXAPARIN SODIUM
     Indication: Thrombosis prophylaxis
     Dosage: 4000 IU/DAY
     Route: 058
     Dates: start: 20240125
  7. HYDROXYZINE HYDROCHLORIDE [Concomitant]
     Active Substance: HYDROXYZINE HYDROCHLORIDE
     Indication: Anxiety
     Dosage: TIME INTERVAL: TOTAL: 30 ML ONCE
     Route: 048
     Dates: start: 20240125, end: 20240125

REACTIONS (2)
  - Gamma-glutamyltransferase increased [Recovering/Resolving]
  - Hepatic cytolysis [Recovered/Resolved]

NARRATIVE: CASE EVENT DATE: 20240126
